FAERS Safety Report 5262685-X (Version None)
Quarter: 2007Q1

REPORT INFORMATION
  Report Type: 
  Country: None (occurrence: None)
  Receive Date: 20070312
  Receipt Date: 20070226
  Transmission Date: 20070707
  Serious: Yes (Disabling)
  Sender: FDA-Public Use
  Company Number: US-MERCK-0609USA02889

PATIENT
  Age: 68 Year
  Sex: Female

DRUGS (3)
  1. FOSAMAX [Suspect]
     Indication: OSTEOPOROSIS
     Route: 048
     Dates: start: 20011201, end: 20060401
  2. CALCIUM (UNSPECIFIED) [Concomitant]
     Route: 065
     Dates: start: 20011201
  3. [THERAPY UNSPECIFIED] [Concomitant]
     Indication: RHEUMATOID ARTHRITIS
     Route: 065
     Dates: start: 19910101

REACTIONS (5)
  - ANAEMIA [None]
  - PAIN IN JAW [None]
  - RENAL IMPAIRMENT [None]
  - RESORPTION BONE INCREASED [None]
  - VASCULITIS [None]
